FAERS Safety Report 5947403-1 (Version None)
Quarter: 2008Q4

REPORT INFORMATION
  Report Type: 
  Country: None (occurrence: None)
  Receive Date: 20081110
  Receipt Date: 20081031
  Transmission Date: 20090506
  Serious: Yes (Other)
  Sender: FDA-Public Use
  Company Number: DE-PFIZER INC-2008092373

PATIENT
  Age: 20 Year
  Sex: Male

DRUGS (1)
  1. AZULFIDINE EN-TABS [Suspect]
     Indication: UVEITIS
     Route: 048
     Dates: start: 20080101

REACTIONS (1)
  - HAEMOLYSIS [None]
